FAERS Safety Report 7111302-2 (Version None)
Quarter: 2010Q4

REPORT INFORMATION
  Report Type: 
  Country: None (occurrence: None)
  Receive Date: 20101118
  Receipt Date: 20101108
  Transmission Date: 20110411
  Serious: Yes (Other)
  Sender: FDA-Public Use
  Company Number: DE-B.I. PHARMACEUTICALS,INC./RIDGEFIELD-2010-DE-06127DE

PATIENT
  Sex: Female
  Weight: 59 kg

DRUGS (6)
  1. PRADAXA [Suspect]
     Indication: HIP ARTHROPLASTY
     Dosage: 220 MG
     Dates: start: 20100803, end: 20100821
  2. VOLTAEREN RESINAT [Concomitant]
     Indication: HIP ARTHROPLASTY
     Dosage: 2 ANZ
     Dates: start: 20100803, end: 20100821
  3. SERTRALINE HYDROCHLORIDE [Concomitant]
     Indication: BREAST CANCER
     Dosage: 100 MG
     Dates: start: 20100803, end: 20100821
  4. SERTRALINE HYDROCHLORIDE [Concomitant]
     Indication: THERAPEUTIC PROCEDURE
  5. TAMOXIFEN CITRATE [Concomitant]
     Indication: BREAST CANCER
     Dosage: 20 MG
     Dates: start: 20100803, end: 20100821
  6. TAMOXIFEN CITRATE [Concomitant]
     Indication: THERAPEUTIC PROCEDURE

REACTIONS (4)
  - C-REACTIVE PROTEIN INCREASED [None]
  - FISTULA [None]
  - POST PROCEDURAL HAEMATOMA [None]
  - WOUND SECRETION [None]
